FAERS Safety Report 6684034-2 (Version None)
Quarter: 2010Q2

REPORT INFORMATION
  Report Type: 
  Country: None (occurrence: None)
  Receive Date: 20100416
  Receipt Date: 20100401
  Transmission Date: 20101027
  Serious: Yes (Other)
  Sender: FDA-Public Use
  Company Number: GB-MYLANLABS-2010S1005799

PATIENT
  Age: 68 Year
  Sex: Male
  Weight: 106 kg

DRUGS (6)
  1. WARFARIN SODIUM [Suspect]
     Indication: DRUG USE FOR UNKNOWN INDICATION
  2. CHAMPIX /05703001/ [Interacting]
     Indication: SMOKING CESSATION THERAPY
     Route: 048
     Dates: start: 20100308
  3. CANDESARTAN [Concomitant]
     Indication: HYPERTENSION
     Route: 048
  4. FRUSEMIDE [Concomitant]
     Indication: HYPERTENSION
     Route: 048
  5. SIMVASTATIN [Concomitant]
     Indication: DRUG USE FOR UNKNOWN INDICATION
  6. LEVOTHYROXINE SODIUM [Concomitant]
     Indication: DRUG USE FOR UNKNOWN INDICATION
     Route: 048

REACTIONS (2)
  - DRUG INTERACTION [None]
  - INTERNATIONAL NORMALISED RATIO INCREASED [None]
